FAERS Safety Report 16199597 (Version 3)
Quarter: 2021Q2

REPORT INFORMATION
  Report Type: Spontaneous
  Country: US (occurrence: US)
  Receive Date: 20190415
  Receipt Date: 20210412
  Transmission Date: 20210716
  Serious: No
  Sender: FDA-Public Use
  Company Number: US-CORCEPT THERAPEUTICS INC.-US-2019CRT000110

PATIENT
  Age: 56 Year
  Sex: Female
  Weight: 71.2 kg

DRUGS (11)
  1. ASPIRIN                            /00002701/ [Concomitant]
     Active Substance: ASPIRIN
     Indication: PRODUCT USED FOR UNKNOWN INDICATION
     Dosage: 81 MG, UNK
  2. KORLYM [Suspect]
     Active Substance: MIFEPRISTONE
     Dosage: 300 MG,QD
     Route: 048
     Dates: start: 2019, end: 20190630
  3. CALCIUM [Concomitant]
     Active Substance: CALCIUM
     Indication: PRODUCT USED FOR UNKNOWN INDICATION
     Dosage: UNK
  4. KORLYM [Suspect]
     Active Substance: MIFEPRISTONE
     Dosage: 300 MG. QD
     Route: 048
     Dates: start: 20190211, end: 201904
  5. MULTIVITAMIN                       /00097801/ [Concomitant]
     Active Substance: VITAMINS
     Indication: PRODUCT USED FOR UNKNOWN INDICATION
     Dosage: UNK
  6. KORLYM [Suspect]
     Active Substance: MIFEPRISTONE
     Dosage: ALTERNATING 1 AND 2 TABS EVERY OTHER DAY
     Dates: start: 201904, end: 2019
  7. VITAMIN C [Concomitant]
     Active Substance: ASCORBIC ACID
     Indication: PRODUCT USED FOR UNKNOWN INDICATION
     Dosage: UNK
  8. KORLYM [Suspect]
     Active Substance: MIFEPRISTONE
     Dosage: 600 MG, QD
     Route: 048
     Dates: start: 20190701
  9. KORLYM [Suspect]
     Active Substance: MIFEPRISTONE
     Indication: CUSHING^S SYNDROME
     Dosage: 300 MG, QD
     Route: 048
     Dates: start: 20190108, end: 20190123
  10. ASPIRIN                            /00002701/ [Concomitant]
     Active Substance: ASPIRIN
     Dosage: 81 MG
  11. ALENDRONATE [Concomitant]
     Active Substance: ALENDRONATE SODIUM
     Indication: PRODUCT USED FOR UNKNOWN INDICATION
     Dosage: UNK

REACTIONS (16)
  - Basal cell carcinoma [Unknown]
  - Rash pruritic [Recovered/Resolved]
  - Hypothyroidism [Unknown]
  - Blood pressure increased [Recovering/Resolving]
  - Alopecia [Recovering/Resolving]
  - Fatigue [Unknown]
  - Nausea [Unknown]
  - Somnolence [Unknown]
  - Anxiety [Recovering/Resolving]
  - Blood potassium increased [Unknown]
  - Wound [Not Recovered/Not Resolved]
  - Therapeutic product effect decreased [Unknown]
  - Incorrect dose administered [Unknown]
  - Hair disorder [Recovering/Resolving]
  - Abdominal distension [Unknown]
  - Myalgia [Unknown]

NARRATIVE: CASE EVENT DATE: 2019
